FAERS Safety Report 11173887 (Version 1)
Quarter: 2015Q2

REPORT INFORMATION
  Report Type: Spontaneous
  Country: US (occurrence: US)
  Receive Date: 20150609
  Receipt Date: 20150609
  Transmission Date: 20150821
  Serious: Yes (Other)
  Sender: FDA-Public Use
  Company Number: US-DRREDDYS-USA/USA/14/0042050

PATIENT
  Age: 36 Year
  Sex: Female

DRUGS (4)
  1. TRIMETHOPRIM-SULFAMETHOXAZOLE [Suspect]
     Active Substance: SULFAMETHOXAZOLE\TRIMETHOPRIM
     Indication: PNEUMOCYSTIS JIROVECII PNEUMONIA
     Route: 065
  2. CIDOFOVIR. [Suspect]
     Active Substance: CIDOFOVIR
     Indication: VIRAL HAEMORRHAGIC CYSTITIS
     Route: 065
  3. TACROLIMUS. [Suspect]
     Active Substance: TACROLIMUS
     Indication: GRAFT VERSUS HOST DISEASE
     Route: 065
  4. PYRIDIUM [Suspect]
     Active Substance: PHENAZOPYRIDINE
     Indication: PRODUCT USED FOR UNKNOWN INDICATION
     Route: 065

REACTIONS (2)
  - Posterior reversible encephalopathy syndrome [Recovered/Resolved]
  - Acute kidney injury [Unknown]
